FAERS Safety Report 8828722 (Version 2)
Quarter: 2012Q4

REPORT INFORMATION
  Report Type: 
  Country: DE (occurrence: DE)
  Receive Date: 20121008
  Receipt Date: 20121126
  Transmission Date: 20130627
  Serious: Yes (Death)
  Sender: FDA-Public Use
  Company Number: DE-CELGENEUS-062-20785-12100604

PATIENT
  Sex: Female

DRUGS (4)
  1. THALIDOMIDE [Suspect]
     Indication: DRUG USE FOR UNKNOWN INDICATION
     Route: 048
     Dates: start: 20120830, end: 20120912
  2. REVLIMID [Suspect]
     Indication: DRUG USE FOR UNKNOWN INDICATION
     Route: 048
     Dates: start: 20120414
  3. REVLIMID [Suspect]
     Route: 048
     Dates: start: 20120512
  4. REVLIMID [Suspect]
     Route: 048
     Dates: start: 20120608

REACTIONS (1)
  - Plasma cell myeloma [Fatal]
